FAERS Safety Report 16241268 (Version 1)
Quarter: 2019Q2

REPORT INFORMATION
  Report Type: Report from Study
  Country: None (occurrence: US)
  Receive Date: 20190426
  Receipt Date: 20190426
  Transmission Date: 20190711
  Serious: Yes (Other)
  Sender: FDA-Public Use
  Company Number: US-ABBVIE-19K-163-2752318-00

PATIENT
  Age: 82 Year
  Sex: Female

DRUGS (1)
  1. HUMIRA [Suspect]
     Active Substance: ADALIMUMAB
     Indication: PSORIATIC ARTHROPATHY
     Route: 058

REACTIONS (8)
  - Loss of consciousness [Recovered/Resolved]
  - Cough [Recovering/Resolving]
  - Abdominal pain upper [Unknown]
  - Dehydration [Recovered/Resolved]
  - Feeling hot [Recovered/Resolved]
  - Rhinorrhoea [Recovering/Resolving]
  - Decreased appetite [Recovering/Resolving]
  - Hypersensitivity [Recovering/Resolving]

NARRATIVE: CASE EVENT DATE: 20180704
